FAERS Safety Report 19135057 (Version 3)
Quarter: 2021Q3

REPORT INFORMATION
  Report Type: Spontaneous
  Country: US (occurrence: US)
  Receive Date: 20210414
  Receipt Date: 20210805
  Transmission Date: 20211014
  Serious: No
  Sender: FDA-Public Use
  Company Number: US-TEVA-2021-US-1896301

PATIENT
  Age: 44 Year
  Sex: Male

DRUGS (5)
  1. DISULFIRAM TEVA [Suspect]
     Active Substance: DISULFIRAM
     Indication: ALCOHOLISM
     Route: 065
     Dates: start: 2018
  2. BUSPIRONE [Concomitant]
     Active Substance: BUSPIRONE HYDROCHLORIDE
  3. DEPAKOTE [Concomitant]
     Active Substance: DIVALPROEX SODIUM
  4. SEROQUEL [Concomitant]
     Active Substance: QUETIAPINE FUMARATE
  5. DISULFIRAM TEVA [Suspect]
     Active Substance: DISULFIRAM
     Dosage: 1 TAB DAILY
     Route: 065
     Dates: start: 20201204

REACTIONS (7)
  - Drug ineffective [Unknown]
  - Blood alcohol increased [Unknown]
  - Wrong technique in product usage process [Unknown]
  - Illness [Unknown]
  - Product dose omission issue [Unknown]
  - Product quality issue [Unknown]
  - Road traffic accident [Unknown]

NARRATIVE: CASE EVENT DATE: 20210116
